FAERS Safety Report 4604208-1 (Version None)
Quarter: 2005Q2

REPORT INFORMATION
  Report Type: 
  Country: None (occurrence: None)
  Receive Date: 20050214
  Receipt Date: 20050105
  Transmission Date: 20051028
  Serious: No
  Sender: FDA-Public Use
  Company Number: USA050187625

PATIENT
  Sex: Female

DRUGS (3)
  1. CIALIS [Suspect]
     Dosage: 10 MG
  2. ALBUTEROL [Concomitant]
  3. VITAMINS NOS [Concomitant]

REACTIONS (2)
  - FEELING HOT [None]
  - MEDICATION ERROR [None]
